FAERS Safety Report 18174884 (Version 2)
Quarter: 2020Q3

REPORT INFORMATION
  Report Type: Report from Study
  Country: US (occurrence: US)
  Receive Date: 20200820
  Receipt Date: 20200921
  Transmission Date: 20201103
  Serious: Yes (Other)
  Sender: FDA-Public Use
  Company Number: US-TEVA-2020-US-1817356

PATIENT
  Age: 8 Decade
  Sex: Female

DRUGS (1)
  1. AUSTEDO [Suspect]
     Active Substance: DEUTETRABENAZINE
     Indication: TARDIVE DYSKINESIA
     Route: 065
     Dates: start: 20200220, end: 2020

REACTIONS (4)
  - Parkinson^s disease [Unknown]
  - Akathisia [Unknown]
  - Adverse event [Unknown]
  - Restlessness [Unknown]

NARRATIVE: CASE EVENT DATE: 2020
